FAERS Safety Report 8036334-1 (Version None)
Quarter: 2012Q1

REPORT INFORMATION
  Report Type: 
  Country: None (occurrence: None)
  Receive Date: 20120111
  Receipt Date: 20111111
  Transmission Date: 20120608
  Serious: No
  Sender: FDA-Public Use
  Company Number: US-GLAXOSMITHKLINE-A0953279A

PATIENT
  Sex: Male

DRUGS (1)
  1. JALYN [Suspect]
     Indication: BENIGN PROSTATIC HYPERPLASIA

REACTIONS (3)
  - LIBIDO DECREASED [None]
  - EJACULATION DISORDER [None]
  - ERECTILE DYSFUNCTION [None]
